FAERS Safety Report 5254997-0 (Version None)
Quarter: 2007Q1

REPORT INFORMATION
  Report Type: 
  Country: None (occurrence: None)
  Receive Date: 20070305
  Receipt Date: 20070228
  Transmission Date: 20070707
  Serious: Yes (Other)
  Sender: FDA-Public Use
  Company Number: HQWYE264101MAR07

PATIENT
  Sex: Male

DRUGS (6)
  1. EFFEXOR XR [Suspect]
     Indication: DEPRESSION
     Dosage: UNKNOWN
     Route: 048
     Dates: start: 19970101
  2. EFFEXOR XR [Suspect]
     Route: 048
  3. EFFEXOR XR [Suspect]
     Route: 048
  4. EFFEXOR XR [Suspect]
     Route: 048
  5. EFFEXOR XR [Suspect]
     Route: 048
  6. EFFEXOR XR [Suspect]
     Route: 048
     Dates: end: 20070223

REACTIONS (6)
  - ARTHRALGIA [None]
  - CONFUSIONAL STATE [None]
  - DIZZINESS [None]
  - DRUG WITHDRAWAL SYNDROME [None]
  - NAUSEA [None]
  - SUICIDAL IDEATION [None]
